FAERS Safety Report 14640291 (Version 2)
Quarter: 2018Q1

REPORT INFORMATION
  Report Type: Spontaneous
  Country: IT (occurrence: IT)
  Receive Date: 20180315
  Receipt Date: 20180320
  Transmission Date: 20180509
  Serious: Yes (Disabling)
  Sender: FDA-Public Use
  Company Number: PHHY2018IT042587

PATIENT
  Age: 53 Year
  Sex: Male
  Weight: 185 kg

DRUGS (2)
  1. RISPERIDONE. [Suspect]
     Active Substance: RISPERIDONE
     Dosage: 3 MG, QD
     Route: 065
     Dates: start: 20170213
  2. RISPERIDONE. [Suspect]
     Active Substance: RISPERIDONE
     Indication: DELUSIONAL DISORDER, PERSECUTORY TYPE
     Dosage: 3 MG, QD
     Route: 065
     Dates: start: 20160210

REACTIONS (3)
  - Cognitive disorder [Not Recovered/Not Resolved]
  - Disturbance in attention [Not Recovered/Not Resolved]
  - Insomnia [Not Recovered/Not Resolved]

NARRATIVE: CASE EVENT DATE: 20160414
